FAERS Safety Report 22370269 (Version 1)
Quarter: 2023Q2

REPORT INFORMATION
  Report Type: Spontaneous
  Country: JP (occurrence: JP)
  Receive Date: 20230526
  Receipt Date: 20230526
  Transmission Date: 20230721
  Serious: Yes (Hospitalization, Other)
  Sender: FDA-Public Use
  Company Number: JP-MSD-2305JPN002306JAA

PATIENT
  Age: 84 Year
  Sex: Female

DRUGS (1)
  1. KEYTRUDA [Suspect]
     Active Substance: PEMBROLIZUMAB
     Indication: Gingival cancer
     Dosage: UNK
     Route: 065

REACTIONS (4)
  - Inappropriate antidiuretic hormone secretion [Unknown]
  - Altered state of consciousness [Recovering/Resolving]
  - CSF protein increased [Unknown]
  - Encephalitis [Unknown]
